FAERS Safety Report 24863163 (Version 1)
Quarter: 2025Q1

REPORT INFORMATION
  Report Type: Spontaneous
  Country: US (occurrence: US)
  Receive Date: 20250120
  Receipt Date: 20250120
  Transmission Date: 20250409
  Serious: No
  Sender: SANOFI AVENTIS
  Company Number: US-SA-2025SA017038

PATIENT
  Age: 69 Year
  Sex: Male
  Weight: 75 kg

DRUGS (7)
  1. DUPIXENT [Suspect]
     Active Substance: DUPILUMAB
     Indication: Asthma
     Dosage: 300 MG, QOW
     Route: 058
  2. DUPIXENT [Suspect]
     Active Substance: DUPILUMAB
     Indication: Post procedural complication
  3. DUPIXENT [Suspect]
     Active Substance: DUPILUMAB
     Indication: Large intestine polyp
  4. DUPIXENT [Suspect]
     Active Substance: DUPILUMAB
     Indication: Chronic sinusitis
  5. DUPIXENT [Suspect]
     Active Substance: DUPILUMAB
     Indication: Sinusitis
  6. DUPIXENT [Suspect]
     Active Substance: DUPILUMAB
     Indication: Tricuspid valve disease
  7. DUPIXENT [Suspect]
     Active Substance: DUPILUMAB
     Indication: Type V hyperlipidaemia

REACTIONS (4)
  - Feeling abnormal [Unknown]
  - Cough [Unknown]
  - Headache [Unknown]
  - Product use in unapproved indication [Unknown]
